FAERS Safety Report 6262284-7 (Version None)
Quarter: 2009Q3

REPORT INFORMATION
  Report Type: 
  Country: None (occurrence: None)
  Receive Date: 20090702
  Receipt Date: 20090521
  Transmission Date: 20100115
  Serious: No
  Sender: FDA-Public Use
  Company Number: 1000006413

PATIENT
  Age: 70 Year
  Sex: Female

DRUGS (12)
  1. BYSTOLIC [Suspect]
     Indication: HYPERTENSION
     Dosage: 10 MG (10 MG, 1 IN 1 D), ORAL
     Route: 048
     Dates: start: 20090401, end: 20090501
  2. DILTIAZEM [Suspect]
     Indication: HYPERTENSION
     Dosage: 360 MG (1 IN 1 D), ORAL
     Route: 048
  3. AVALIDE [Concomitant]
  4. METFORMIN HCL [Concomitant]
  5. POTASSIUM CHLORIDE [Concomitant]
  6. CENTRUM [Concomitant]
  7. LANTUS [Concomitant]
  8. BYETTA [Concomitant]
  9. ZOCOR [Concomitant]
  10. AMBIEN [Concomitant]
  11. ZYRICA [Concomitant]
  12. NEXIUM [Concomitant]

REACTIONS (1)
  - PALPITATIONS [None]
